FAERS Safety Report 5960160-8 (Version None)
Quarter: 2008Q4

REPORT INFORMATION
  Report Type: 
  Country: None (occurrence: None)
  Receive Date: 20081120
  Receipt Date: 20081111
  Transmission Date: 20090506
  Serious: Yes (Hospitalization)
  Sender: FDA-Public Use
  Company Number: US-ELI_LILLY_AND_COMPANY-US200802003857

PATIENT
  Sex: Female
  Weight: 78.912 kg

DRUGS (10)
  1. BYETTA [Suspect]
     Indication: TYPE 2 DIABETES MELLITUS
     Dosage: 5 UG, 2/D
     Route: 058
     Dates: start: 20061001, end: 20061031
  2. BYETTA [Suspect]
     Dosage: 10 UG, 2/D
     Route: 058
     Dates: start: 20061101
  3. BYETTA [Suspect]
     Dosage: 5 UG, 2/D
     Route: 058
     Dates: start: 20080901, end: 20081101
  4. BYETTA [Suspect]
     Dosage: 10 UG, 2/D
     Route: 058
     Dates: start: 20081101
  5. HUMULIN N [Concomitant]
     Indication: DIABETES MELLITUS
     Dosage: 10 U, EACH EVENING
     Dates: end: 20080201
  6. HUMULIN N [Concomitant]
     Dosage: 25 U, EACH EVENING
     Dates: start: 20080201
  7. METFORMIN HCL [Concomitant]
     Indication: DIABETES MELLITUS
     Dosage: 1000 MG, 2/D
     Route: 048
  8. AMITRIPTYLINE HCL [Concomitant]
     Indication: NEUROPATHY PERIPHERAL
  9. HYDROCHLOROTHIAZIDE W/TRIAMTERENE [Concomitant]
     Indication: FLUID RETENTION
  10. LISINOPRIL [Concomitant]
     Indication: PROPHYLAXIS

REACTIONS (10)
  - BLOOD GLUCOSE DECREASED [None]
  - BLOOD GLUCOSE INCREASED [None]
  - CORONARY ARTERIAL STENT INSERTION [None]
  - DRUG INEFFECTIVE [None]
  - HEADACHE [None]
  - NAUSEA [None]
  - RENAL FAILURE CHRONIC [None]
  - VOMITING [None]
  - WEIGHT DECREASED [None]
  - WEIGHT INCREASED [None]
